APPROVED DRUG PRODUCT: DESIPRAMINE HYDROCHLORIDE
Active Ingredient: DESIPRAMINE HYDROCHLORIDE
Strength: 75MG
Dosage Form/Route: TABLET;ORAL
Application: A072103 | Product #005 | TE Code: AB
Applicant: CHARTWELL RX SCIENCES LLC
Approved: Jun 20, 1988 | RLD: No | RS: No | Type: RX